FAERS Safety Report 7430930-8 (Version None)
Quarter: 2011Q2

REPORT INFORMATION
  Report Type: 
  Country: None (occurrence: None)
  Receive Date: 20110421
  Receipt Date: 20110418
  Transmission Date: 20111010
  Serious: Yes (Other)
  Sender: FDA-Public Use
  Company Number: CA-PFIZER INC-2011084529

PATIENT
  Age: 50 Year
  Sex: Male

DRUGS (6)
  1. ROSIGLITAZONE [Concomitant]
     Dosage: UNK
  2. TOPIRAMATE [Concomitant]
     Dosage: UNK
  3. OXYCODONE [Concomitant]
     Dosage: UNK
  4. CHAMPIX [Suspect]
     Dosage: UNK
  5. CILAZAPRIL [Concomitant]
     Dosage: UNK
  6. LANSOPRAZOLE [Concomitant]
     Dosage: UNK

REACTIONS (1)
  - BLOOD GLUCOSE INCREASED [None]
